FAERS Safety Report 25449289 (Version 2)
Quarter: 2025Q3

REPORT INFORMATION
  Report Type: Spontaneous
  Country: US (occurrence: US)
  Receive Date: 20250618
  Receipt Date: 20250820
  Transmission Date: 20251020
  Serious: Yes (Other)
  Sender: AMGEN
  Company Number: US-AMGEN-USASP2025117506

PATIENT
  Sex: Female

DRUGS (2)
  1. TEPEZZA [Suspect]
     Active Substance: TEPROTUMUMAB-TRBW
     Indication: Product used for unknown indication
     Route: 065
     Dates: start: 20220411, end: 20220801
  2. XIIDRA [Concomitant]
     Active Substance: LIFITEGRAST
     Route: 065

REACTIONS (1)
  - Endocrine ophthalmopathy [Not Recovered/Not Resolved]
